FAERS Safety Report 11092386 (Version 1)
Quarter: 2015Q2

REPORT INFORMATION
  Report Type: Spontaneous
  Country: US (occurrence: None)
  Receive Date: 20150505
  Receipt Date: 20150505
  Transmission Date: 20150821
  Serious: No
  Sender: FDA-Public Use
  Company Number: None

PATIENT
  Age: 30 Year
  Sex: Female
  Weight: 68.04 kg

DRUGS (1)
  1. ZICAM COLD REMEDY NASAL SWABS (ZINC) [Suspect]
     Active Substance: ZINC ACETATE\ZINC GLUCONATE
     Indication: NASOPHARYNGITIS
     Route: 061

REACTIONS (6)
  - Anosmia [None]
  - Ageusia [None]
  - Upper respiratory tract infection [None]
  - Product quality issue [None]
  - Hyposmia [None]
  - Sinus congestion [None]

NARRATIVE: CASE EVENT DATE: 20080830
